FAERS Safety Report 25613657 (Version 1)
Quarter: 2025Q3

REPORT INFORMATION
  Report Type: Spontaneous
  Country: CA (occurrence: CA)
  Receive Date: 20250728
  Receipt Date: 20250728
  Transmission Date: 20251020
  Serious: Yes (Death, Life-Threatening)
  Sender: DAIICHI
  Company Number: CA-ASTRAZENECA-202507CAN011578CA

PATIENT
  Age: 67 Year
  Sex: Female
  Weight: 63 kg

DRUGS (3)
  1. TRASTUZUMAB DERUXTECAN [Suspect]
     Active Substance: TRASTUZUMAB DERUXTECAN
     Indication: Product used for unknown indication
     Route: 042
  2. IBUPROFEN [Concomitant]
     Active Substance: IBUPROFEN
     Indication: Product used for unknown indication
     Route: 065
  3. OXYMETAZOLINE [OXYMETAZOLINE HYDROCHLORIDE] [Concomitant]
     Indication: Product used for unknown indication
     Route: 065

REACTIONS (6)
  - Dysarthria [Fatal]
  - Dyspnoea [Fatal]
  - Gait disturbance [Fatal]
  - Hypophagia [Fatal]
  - Hypoxia [Fatal]
  - Lethargy [Fatal]
